FAERS Safety Report 7610763-X (Version None)
Quarter: 2011Q3

REPORT INFORMATION
  Report Type: 
  Country: None (occurrence: None)
  Receive Date: 20110715
  Receipt Date: 20110707
  Transmission Date: 20111222
  Serious: No
  Sender: FDA-Public Use
  Company Number: US-B.I. PHARMACEUTICALS,INC./RIDGEFIELD-2011-BP-13333BP

PATIENT
  Sex: Male

DRUGS (20)
  1. NAPROXEN (ALEVE) [Suspect]
     Indication: ARTHRITIS
     Dates: end: 20110512
  2. LISINOPRIL [Concomitant]
     Indication: CARDIAC DISORDER
     Dosage: 10 MG
     Route: 048
  3. PRADAXA [Suspect]
     Dosage: 150 MG
     Route: 048
     Dates: start: 20110501
  4. COREG [Concomitant]
     Indication: CARDIAC DISORDER
     Dosage: 13 MG
     Route: 048
  5. COREG [Concomitant]
     Indication: HYPERTENSION
  6. NITROGLYCERIN [Concomitant]
     Indication: CHEST PAIN
     Route: 048
  7. FISH OIL [Concomitant]
     Indication: PROPHYLAXIS
     Dosage: 2400 MG
     Route: 048
  8. LISINOPRIL [Concomitant]
     Indication: HYPERTENSION
  9. IMDUR [Concomitant]
     Indication: HYPERTENSION
  10. LASIX [Concomitant]
     Indication: ATRIAL FIBRILLATION
  11. TYLENOL-500 [Concomitant]
     Indication: ARTHRITIS
  12. SYNTHROID [Concomitant]
     Indication: HYPOTHYROIDISM
     Route: 048
  13. PRADAXA [Suspect]
     Indication: ATRIAL FIBRILLATION
     Dosage: 300 MG
     Route: 048
     Dates: start: 20110505
  14. GLUCOSAMINE SULFATE [Concomitant]
     Dosage: 1000 MG
  15. LEVOXYL [Concomitant]
     Indication: THYROID DISORDER
     Dosage: 0.1 MG
     Route: 048
  16. CENTRUM SILVER [Concomitant]
  17. LASIX [Concomitant]
     Indication: FLUID RETENTION
     Dosage: 120 MG
     Route: 048
  18. MULTI-VITAMIN [Concomitant]
     Indication: ROUTINE HEALTH MAINTENANCE
     Route: 048
  19. IMDUR [Concomitant]
     Indication: CARDIAC DISORDER
     Dosage: 60 MG
     Route: 048
  20. NITROGLYCERIN [Concomitant]
     Indication: CARDIAC DISORDER

REACTIONS (4)
  - RECTAL HAEMORRHAGE [None]
  - CONTUSION [None]
  - CONSTIPATION [None]
  - MELAENA [None]
